FAERS Safety Report 4279041-3 (Version None)
Quarter: 2004Q1

REPORT INFORMATION
  Report Type: 
  Country: None (occurrence: None)
  Receive Date: 20040122
  Receipt Date: 20040109
  Transmission Date: 20041129
  Serious: Yes (Hospitalization, Other)
  Sender: FDA-Public Use
  Company Number: 2003126210

PATIENT
  Sex: Male

DRUGS (5)
  1. LIPITOR [Suspect]
     Indication: HYPERCHOLESTEROLAEMIA
     Dosage: (DAILY), ORAL
     Route: 048
     Dates: end: 20031112
  2. PHENYTOIN [Concomitant]
  3. WARFARIN SODIUM [Concomitant]
  4. ENALAPRIL MALEATE [Concomitant]
  5. BACLOFEN [Concomitant]

REACTIONS (2)
  - DEAFNESS [None]
  - FACIAL PALSY [None]
